FAERS Safety Report 25896093 (Version 1)
Quarter: 2025Q4

REPORT INFORMATION
  Report Type: Spontaneous
  Country: EU (occurrence: EU)
  Receive Date: 20251008
  Receipt Date: 20251008
  Transmission Date: 20260118
  Serious: Yes (Other)
  Sender: MYLAN
  Company Number: EU-MYLANLABS-2025M1085428

PATIENT
  Age: 45 Year
  Sex: Female

DRUGS (52)
  1. METHOTREXATE [Suspect]
     Active Substance: METHOTREXATE
     Indication: Erythema multiforme
     Dosage: UNK
  2. METHOTREXATE [Suspect]
     Active Substance: METHOTREXATE
     Dosage: UNK
     Route: 065
  3. METHOTREXATE [Suspect]
     Active Substance: METHOTREXATE
     Dosage: UNK
     Route: 065
  4. METHOTREXATE [Suspect]
     Active Substance: METHOTREXATE
     Dosage: UNK
  5. ACYCLOVIR [Suspect]
     Active Substance: ACYCLOVIR
     Indication: Erythema multiforme
     Dosage: 400 MILLIGRAM, BID
  6. ACYCLOVIR [Suspect]
     Active Substance: ACYCLOVIR
     Dosage: 400 MILLIGRAM, BID
     Route: 065
  7. ACYCLOVIR [Suspect]
     Active Substance: ACYCLOVIR
     Dosage: 400 MILLIGRAM, BID
     Route: 065
  8. ACYCLOVIR [Suspect]
     Active Substance: ACYCLOVIR
     Dosage: 400 MILLIGRAM, BID
  9. GABAPENTIN [Suspect]
     Active Substance: GABAPENTIN
     Indication: Erythema multiforme
     Dosage: UNK
  10. GABAPENTIN [Suspect]
     Active Substance: GABAPENTIN
     Dosage: UNK
     Route: 065
  11. GABAPENTIN [Suspect]
     Active Substance: GABAPENTIN
     Dosage: UNK
     Route: 065
  12. GABAPENTIN [Suspect]
     Active Substance: GABAPENTIN
     Dosage: UNK
  13. SERTRALINE [Suspect]
     Active Substance: SERTRALINE HYDROCHLORIDE
     Indication: Erythema multiforme
     Dosage: UNK
  14. SERTRALINE [Suspect]
     Active Substance: SERTRALINE HYDROCHLORIDE
     Dosage: UNK
     Route: 065
  15. SERTRALINE [Suspect]
     Active Substance: SERTRALINE HYDROCHLORIDE
     Dosage: UNK
     Route: 065
  16. SERTRALINE [Suspect]
     Active Substance: SERTRALINE HYDROCHLORIDE
     Dosage: UNK
  17. MYCOPHENOLATE MOFETIL [Suspect]
     Active Substance: MYCOPHENOLATE MOFETIL
     Indication: Erythema multiforme
     Dosage: 750 MILLIGRAM, BID
  18. MYCOPHENOLATE MOFETIL [Suspect]
     Active Substance: MYCOPHENOLATE MOFETIL
     Dosage: 750 MILLIGRAM, BID
  19. MYCOPHENOLATE MOFETIL [Suspect]
     Active Substance: MYCOPHENOLATE MOFETIL
     Dosage: 750 MILLIGRAM, BID
     Route: 065
  20. MYCOPHENOLATE MOFETIL [Suspect]
     Active Substance: MYCOPHENOLATE MOFETIL
     Dosage: 750 MILLIGRAM, BID
     Route: 065
  21. MYCOPHENOLATE MOFETIL [Suspect]
     Active Substance: MYCOPHENOLATE MOFETIL
     Dosage: UNK {THERAPY GRADUALLY TAPERED (GRADUALLY TRANSITIONED)}
  22. MYCOPHENOLATE MOFETIL [Suspect]
     Active Substance: MYCOPHENOLATE MOFETIL
     Dosage: UNK {THERAPY GRADUALLY TAPERED (GRADUALLY TRANSITIONED)}
  23. MYCOPHENOLATE MOFETIL [Suspect]
     Active Substance: MYCOPHENOLATE MOFETIL
     Dosage: UNK {THERAPY GRADUALLY TAPERED (GRADUALLY TRANSITIONED)}
     Route: 065
  24. MYCOPHENOLATE MOFETIL [Suspect]
     Active Substance: MYCOPHENOLATE MOFETIL
     Dosage: UNK {THERAPY GRADUALLY TAPERED (GRADUALLY TRANSITIONED)}
     Route: 065
  25. APREMILAST [Suspect]
     Active Substance: APREMILAST
     Indication: Erythema multiforme
     Dosage: 30 MILLIGRAM, BID
  26. APREMILAST [Suspect]
     Active Substance: APREMILAST
     Dosage: 30 MILLIGRAM, BID
     Route: 065
  27. APREMILAST [Suspect]
     Active Substance: APREMILAST
     Dosage: 30 MILLIGRAM, BID
     Route: 065
  28. APREMILAST [Suspect]
     Active Substance: APREMILAST
     Dosage: 30 MILLIGRAM, BID
  29. HYDROXYCHLOROQUINE [Suspect]
     Active Substance: HYDROXYCHLOROQUINE
     Indication: Erythema multiforme
     Dosage: 400 MILLIGRAM, QD
  30. HYDROXYCHLOROQUINE [Suspect]
     Active Substance: HYDROXYCHLOROQUINE
     Dosage: 400 MILLIGRAM, QD
     Route: 065
  31. HYDROXYCHLOROQUINE [Suspect]
     Active Substance: HYDROXYCHLOROQUINE
     Dosage: 400 MILLIGRAM, QD
     Route: 065
  32. HYDROXYCHLOROQUINE [Suspect]
     Active Substance: HYDROXYCHLOROQUINE
     Dosage: 400 MILLIGRAM, QD
  33. TRETINOIN [Suspect]
     Active Substance: TRETINOIN
     Indication: Erythema multiforme
     Dosage: UNK
  34. TRETINOIN [Suspect]
     Active Substance: TRETINOIN
     Dosage: UNK
     Route: 061
  35. TRETINOIN [Suspect]
     Active Substance: TRETINOIN
     Dosage: UNK
     Route: 061
  36. TRETINOIN [Suspect]
     Active Substance: TRETINOIN
     Dosage: UNK
  37. QUINACRINE [Suspect]
     Active Substance: QUINACRINE
     Indication: Erythema multiforme
     Dosage: UNK
  38. QUINACRINE [Suspect]
     Active Substance: QUINACRINE
     Dosage: UNK
     Route: 065
  39. QUINACRINE [Suspect]
     Active Substance: QUINACRINE
     Dosage: UNK
     Route: 065
  40. QUINACRINE [Suspect]
     Active Substance: QUINACRINE
     Dosage: UNK
  41. ACITRETIN [Suspect]
     Active Substance: ACITRETIN
     Indication: Erythema multiforme
     Dosage: UNK
  42. ACITRETIN [Suspect]
     Active Substance: ACITRETIN
     Dosage: UNK
     Route: 065
  43. ACITRETIN [Suspect]
     Active Substance: ACITRETIN
     Dosage: UNK
     Route: 065
  44. ACITRETIN [Suspect]
     Active Substance: ACITRETIN
     Dosage: UNK
  45. DAPSONE [Suspect]
     Active Substance: DAPSONE
     Indication: Erythema multiforme
     Dosage: UNK
  46. DAPSONE [Suspect]
     Active Substance: DAPSONE
     Dosage: UNK
     Route: 065
  47. DAPSONE [Suspect]
     Active Substance: DAPSONE
     Dosage: UNK
     Route: 065
  48. DAPSONE [Suspect]
     Active Substance: DAPSONE
     Dosage: UNK
  49. UPADACITINIB [Suspect]
     Active Substance: UPADACITINIB
     Indication: Erythema multiforme
     Dosage: 15 MILLIGRAM, QD
  50. UPADACITINIB [Suspect]
     Active Substance: UPADACITINIB
     Dosage: 15 MILLIGRAM, QD
     Route: 065
  51. UPADACITINIB [Suspect]
     Active Substance: UPADACITINIB
     Dosage: 15 MILLIGRAM, QD
     Route: 065
  52. UPADACITINIB [Suspect]
     Active Substance: UPADACITINIB
     Dosage: 15 MILLIGRAM, QD

REACTIONS (2)
  - Drug ineffective for unapproved indication [Unknown]
  - Off label use [Unknown]
